FAERS Safety Report 24060964 (Version 1)
Quarter: 2024Q3

REPORT INFORMATION
  Report Type: Spontaneous
  Country: US (occurrence: US)
  Receive Date: 20240708
  Receipt Date: 20240708
  Transmission Date: 20241016
  Serious: Yes (Death, Hospitalization, Other)
  Sender: DR REDDYS
  Company Number: US-DRL-USA-LIT/USA/24/0009862

PATIENT
  Age: 67 Year
  Sex: Male

DRUGS (7)
  1. CAPECITABINE [Suspect]
     Active Substance: CAPECITABINE
     Indication: Insulinoma
  2. TEMOZOLOMIDE [Concomitant]
     Active Substance: TEMOZOLOMIDE
     Indication: Insulinoma
  3. DEXTROSE [Concomitant]
     Active Substance: DEXTROSE\DEXTROSE MONOHYDRATE
     Indication: Hypoglycaemia
     Route: 042
  4. DIAZOXIDE [Concomitant]
     Active Substance: DIAZOXIDE
     Indication: Hypoglycaemia
     Dosage: 100 MG 4 TIMES PER DAY
  5. PREDNISONE [Concomitant]
     Active Substance: PREDNISONE
     Indication: Hypoglycaemia
     Dosage: 10 MG TWICE PER DAY
  6. OCTREOTIDE [Concomitant]
     Active Substance: OCTREOTIDE\OCTREOTIDE ACETATE
     Indication: Hypoglycaemia
     Dosage: SUBCUTANEOUS OCTREOTIDE 100 MCG THREE TIMES PER DAY
     Route: 058
  7. PASIREOTIDE [Concomitant]
     Active Substance: PASIREOTIDE
     Indication: Hypoglycaemia

REACTIONS (1)
  - Drug ineffective for unapproved indication [Fatal]
